FAERS Safety Report 6757156-5 (Version None)
Quarter: 2010Q2

REPORT INFORMATION
  Report Type: 
  Country: None (occurrence: None)
  Receive Date: 20100607
  Receipt Date: 20100526
  Transmission Date: 20101027
  Serious: Yes (Hospitalization)
  Sender: FDA-Public Use
  Company Number: PHHY2010AT29529

PATIENT
  Age: 29 Year
  Sex: Female
  Weight: 63 kg

DRUGS (18)
  1. LEPONEX [Suspect]
     Dosage: 50 MG
     Dates: start: 20090414, end: 20090415
  2. LEPONEX [Suspect]
     Dosage: 100 MG
     Dates: start: 20090416, end: 20090420
  3. LEPONEX [Suspect]
     Dosage: 150 MG
     Dates: start: 20090417, end: 20090418
  4. LEPONEX [Suspect]
     Dosage: 200 MG
     Dates: start: 20090419
  5. LEPONEX [Suspect]
     Dosage: 250 MG
     Dates: start: 20090423, end: 20090429
  6. LEPONEX [Suspect]
     Dosage: 275 MG
     Dates: start: 20090430, end: 20090501
  7. LEPONEX [Suspect]
     Dosage: 300 MG
     Dates: start: 20090502, end: 20090505
  8. LEPONEX [Suspect]
     Dosage: 250 MG
     Dates: start: 20090506, end: 20090516
  9. LEPONEX [Suspect]
     Dosage: 200 MG
     Dates: start: 20090517, end: 20090522
  10. LEPONEX [Suspect]
     Dosage: 150 MG
     Dates: start: 20090523
  11. OXAZEPAM [Suspect]
     Dosage: 30 MG DAILY
     Dates: start: 20090502, end: 20090505
  12. OXAZEPAM [Suspect]
     Dosage: 15 MG DAILY
     Dates: start: 20090506, end: 20090515
  13. DEPAKENE [Suspect]
     Dosage: 1000 MG
     Dates: start: 20090413
  14. AKINETON [Concomitant]
     Dosage: 4 MG
     Dates: start: 20090413, end: 20090505
  15. AKINETON [Concomitant]
     Dosage: 6 MG DAILY
     Dates: start: 20090506
  16. VENLAFAXINE HCL [Concomitant]
     Dosage: 150 MG
     Dates: start: 20090413, end: 20090427
  17. VENLAFAXINE HCL [Concomitant]
     Dosage: 225 MG
     Dates: start: 20090428
  18. SOLIAN [Concomitant]
     Dosage: 400 MG
     Dates: start: 20090517

REACTIONS (6)
  - BLOOD GLUCOSE INCREASED [None]
  - FALL [None]
  - HAEMORRHAGE [None]
  - HEAD INJURY [None]
  - HEART RATE INCREASED [None]
  - VERTIGO [None]
